FAERS Safety Report 8134520-3 (Version None)
Quarter: 2012Q1

REPORT INFORMATION
  Report Type: 
  Country: None (occurrence: None)
  Receive Date: 20120214
  Receipt Date: 20120206
  Transmission Date: 20120608
  Serious: Yes (Hospitalization)
  Sender: FDA-Public Use
  Company Number: US-ASTELLAS-2012US000078

PATIENT
  Sex: Male
  Weight: 64 kg

DRUGS (3)
  1. TARCEVA [Suspect]
     Dosage: 75 MG, UID/QD
     Route: 048
     Dates: start: 20111230
  2. TARCEVA [Suspect]
     Indication: NON-SMALL CELL LUNG CANCER
     Dosage: 150 MG, UID/QD
     Route: 048
     Dates: start: 20111118, end: 20111125
  3. TARCEVA [Suspect]
     Dosage: 150 MG, UID/QD
     Route: 048
     Dates: start: 20111127, end: 20111207

REACTIONS (6)
  - GASTROENTERITIS VIRAL [None]
  - DECREASED APPETITE [None]
  - PULMONARY OEDEMA [None]
  - COLITIS [None]
  - CARDIAC FAILURE CONGESTIVE [None]
  - COUGH [None]
